FAERS Safety Report 6835795-0 (Version None)
Quarter: 2010Q2

REPORT INFORMATION
  Report Type: 
  Country: None (occurrence: None)
  Receive Date: 20100520
  Receipt Date: 20090521
  Transmission Date: 20101027
  Serious: Yes (Death, Other)
  Sender: FDA-Public Use
  Company Number: 2009217969

PATIENT
  Age: 58 Year
  Sex: Female
  Weight: 59.9 kg

DRUGS (6)
  1. PROVERA [Suspect]
     Indication: HORMONE REPLACEMENT THERAPY
     Dosage: 2.5-5MG, ORAL
     Route: 048
     Dates: start: 19910101, end: 19991101
  2. PREMARIN [Suspect]
     Indication: HORMONE REPLACEMENT THERAPY
     Dosage: 0.625 MG
     Dates: start: 19910101, end: 19991101
  3. SYNTHROID [Concomitant]
  4. THEO-DUR [Concomitant]
  5. ASPIRIN [Concomitant]
  6. ALBUTEROL [Concomitant]

REACTIONS (1)
  - BREAST CANCER [None]
